FAERS Safety Report 9779899 (Version 2)
Quarter: 2014Q1

REPORT INFORMATION
  Report Type: Spontaneous
  Country: FR (occurrence: FR)
  Receive Date: 20131223
  Receipt Date: 20140110
  Transmission Date: 20141002
  Serious: Yes (Hospitalization)
  Sender: FDA-Public Use
  Company Number: PHHY2013FR149576

PATIENT
  Age: 64 Year
  Sex: Male

DRUGS (3)
  1. DOXYCYCLINE SANDOZ [Suspect]
     Indication: BACTERIAL INFECTION
     Dosage: 100 MG, BID
     Route: 048
     Dates: start: 20120910, end: 20120924
  2. CEFTRIAXONE PANPHARMA [Suspect]
     Indication: BACTERIAL INFECTION
     Dosage: 2 G, QD
     Route: 042
     Dates: start: 20120905, end: 20120924
  3. DALACIN [Suspect]
     Indication: BACTERIAL INFECTION
     Dosage: 600 MG, TID
     Route: 048
     Dates: start: 20120910, end: 20120924

REACTIONS (3)
  - Lymphadenopathy [Unknown]
  - Rash [Recovered/Resolved]
  - Eosinophilia [Recovering/Resolving]
